FAERS Safety Report 18954129 (Version 3)
Quarter: 2021Q3

REPORT INFORMATION
  Report Type: Spontaneous
  Country: CA (occurrence: CA)
  Receive Date: 20210301
  Receipt Date: 20210916
  Transmission Date: 20211014
  Serious: Yes (Other)
  Sender: FDA-Public Use
  Company Number: CA-GLAXOSMITHKLINE-CA2021AMR054871

PATIENT
  Age: 79 Year
  Sex: Male

DRUGS (9)
  1. ACITRETIN. [Suspect]
     Active Substance: ACITRETIN
     Indication: PRODUCT USED FOR UNKNOWN INDICATION
     Dosage: UNK
  2. PREDNISONE. [Suspect]
     Active Substance: PREDNISONE
     Indication: PRODUCT USED FOR UNKNOWN INDICATION
     Dosage: UNK,TAPERING
     Route: 065
  3. DUPILUMAB [Suspect]
     Active Substance: DUPILUMAB
     Dosage: 1 DF, WE, 1 EVERY 1 WEEK
     Route: 065
  4. CYCLOSPORINE. [Suspect]
     Active Substance: CYCLOSPORINE
     Indication: PRODUCT USED FOR UNKNOWN INDICATION
     Dosage: UNK
  5. DUPILUMAB [Suspect]
     Active Substance: DUPILUMAB
     Indication: PRODUCT USED FOR UNKNOWN INDICATION
     Dosage: 1 DF (Q2WEEKS)
     Route: 065
  6. RISANKIZUMAB [Suspect]
     Active Substance: RISANKIZUMAB
     Indication: PRODUCT USED FOR UNKNOWN INDICATION
     Dosage: UNK
     Route: 058
  7. VALTREX [Concomitant]
     Active Substance: VALACYCLOVIR HYDROCHLORIDE
     Indication: PRODUCT USED FOR UNKNOWN INDICATION
     Dosage: UNK
  8. SKYRIZI [Suspect]
     Active Substance: RISANKIZUMAB-RZAA
     Indication: PRODUCT USED FOR UNKNOWN INDICATION
     Dosage: UNK
     Route: 058
  9. USTEKINUMAB [Suspect]
     Active Substance: USTEKINUMAB
     Indication: PRODUCT USED FOR UNKNOWN INDICATION
     Dosage: UNK
     Route: 065

REACTIONS (11)
  - Hypereosinophilic syndrome [Unknown]
  - Psoriasis [Unknown]
  - Genital herpes [Unknown]
  - Staphylococcal infection [Unknown]
  - Pityriasis rubra pilaris [Unknown]
  - Dermatitis psoriasiform [Unknown]
  - Skin plaque [Unknown]
  - Dermatitis exfoliative generalised [Unknown]
  - Cutaneous T-cell lymphoma [Unknown]
  - Botryomycosis [Unknown]
  - Therapeutic product effect incomplete [Unknown]
